FAERS Safety Report 4513980-0 (Version None)
Quarter: 2004Q4

REPORT INFORMATION
  Report Type: 
  Country: None (occurrence: None)
  Receive Date: 20041130
  Receipt Date: 20041012
  Transmission Date: 20050328
  Serious: No
  Sender: FDA-Public Use
  Company Number: US-GLAXOSMITHKLINE-A0529672A

PATIENT
  Age: 40 Year
  Sex: Female
  Weight: 104.5 kg

DRUGS (2)
  1. WELLBUTRIN [Suspect]
     Indication: DEPRESSION
     Dosage: 450MG UNKNOWN
     Route: 048
     Dates: start: 20040907
  2. ZOLOFT [Concomitant]
     Indication: DRUG USE FOR UNKNOWN INDICATION
     Dosage: 100MG UNKNOWN
     Route: 048
     Dates: start: 20040607, end: 20041012

REACTIONS (2)
  - MYOCLONUS [None]
  - TREMOR [None]
